FAERS Safety Report 4680696-X (Version None)
Quarter: 2005Q2

REPORT INFORMATION
  Report Type: 
  Country: None (occurrence: None)
  Receive Date: 20050603
  Receipt Date: 20050519
  Transmission Date: 20051028
  Serious: Yes (Hospitalization)
  Sender: FDA-Public Use
  Company Number: 2005AP03018

PATIENT
  Age: 70 Year
  Sex: Female

DRUGS (1)
  1. IRESSA [Suspect]
     Indication: BRONCHIOLOALVEOLAR CARCINOMA
     Route: 048
     Dates: start: 20050307, end: 20050322

REACTIONS (1)
  - PNEUMONIA [None]
